FAERS Safety Report 14224123 (Version 1)
Quarter: 2017Q4

REPORT INFORMATION
  Report Type: Spontaneous
  Country: US (occurrence: US)
  Receive Date: 20171125
  Receipt Date: 20171125
  Transmission Date: 20180321
  Serious: Yes (Hospitalization)
  Sender: FDA-Public Use
  Company Number: None

PATIENT
  Sex: Female
  Weight: 94.5 kg

DRUGS (4)
  1. EFFEXOR [Concomitant]
     Active Substance: VENLAFAXINE HYDROCHLORIDE
  2. ZONEGRAN [Suspect]
     Active Substance: ZONISAMIDE
     Indication: NEURALGIA
     Route: 048
     Dates: start: 20171116, end: 20171118
  3. PLAQENELE [Concomitant]
  4. CLONODINE [Concomitant]

REACTIONS (6)
  - Eye pruritus [None]
  - Nasal discomfort [None]
  - Ear pruritus [None]
  - Eye irritation [None]
  - Throat irritation [None]
  - Eye swelling [None]

NARRATIVE: CASE EVENT DATE: 20171118
